FAERS Safety Report 22247446 (Version 2)
Quarter: 2023Q2

REPORT INFORMATION
  Report Type: Report from Study
  Country: US (occurrence: US)
  Receive Date: 20230425
  Receipt Date: 20230609
  Transmission Date: 20230721
  Serious: Yes (Hospitalization)
  Sender: FDA-Public Use
  Company Number: US-002147023-NVSC2023US092952

PATIENT
  Sex: Female
  Weight: 54.422 kg

DRUGS (3)
  1. TREPROSTINIL [Suspect]
     Active Substance: TREPROSTINIL
     Indication: Pulmonary arterial hypertension
     Dosage: 62 NG/KG/MIN, CONT
     Route: 058
     Dates: start: 20210810
  2. LETAIRIS [Concomitant]
     Active Substance: AMBRISENTAN
     Indication: Product used for unknown indication
     Dosage: UNK
     Route: 065
  3. ELIQUIS [Concomitant]
     Active Substance: APIXABAN
     Indication: Product used for unknown indication
     Dosage: UNK
     Route: 065

REACTIONS (5)
  - Polyuria [Unknown]
  - Cardiac failure congestive [Unknown]
  - Infusion site pain [Unknown]
  - Infusion site erythema [Unknown]
  - Infusion site pruritus [Unknown]
